FAERS Safety Report 10029124 (Version 3)
Quarter: 2014Q2

REPORT INFORMATION
  Report Type: Report from Study
  Country: JP (occurrence: JP)
  Receive Date: 20140321
  Receipt Date: 20140417
  Transmission Date: 20141212
  Serious: Yes (Disabling)
  Sender: FDA-Public Use
  Company Number: JP-B.I. PHARMACEUTICALS,INC./RIDGEFIELD-2013-BI-41326NB

PATIENT
  Age: 67 Year
  Sex: Female
  Weight: 55 kg

DRUGS (9)
  1. MIRAPEX LA [Suspect]
     Indication: PARKINSON^S DISEASE
     Dosage: 3 MG
     Route: 048
     Dates: start: 20120225
  2. NEODOPASTON (LEVODOPA_CARBIDOPA HYDRATE) [Concomitant]
     Indication: PARKINSON^S DISEASE
     Dosage: 300 MG
     Route: 048
     Dates: end: 20121120
  3. NEODOPASTON (LEVODOPA_CARBIDOPA HYDRATE) [Concomitant]
     Dosage: 400 MG
     Route: 048
     Dates: start: 20121121, end: 20121220
  4. NEODOPASTON (LEVODOPA_CARBIDOPA HYDRATE) [Concomitant]
     Dosage: 500 MG
     Route: 048
     Dates: start: 20121221, end: 20130117
  5. NEODOPASTON (LEVODOPA_CARBIDOPA HYDRATE) [Concomitant]
     Dosage: 600 MG
     Route: 048
     Dates: start: 20130118
  6. NEODOPASTON (LEVODOPA_CARBIDOPA HYDRATE) [Concomitant]
     Dosage: 300 MG
     Route: 048
  7. LAXOBERON (SODIUM PICOSULFATE HYDRATE) [Concomitant]
     Dosage: 15GTT
     Route: 048
  8. FELBIS (FELBINAC) [Concomitant]
     Dosage: 1DF
     Route: 062
  9. PROARISIN (INDOMETACIN) [Concomitant]
     Dosage: 1DF
     Route: 062
     Dates: end: 20121220

REACTIONS (3)
  - Constipation [Recovered/Resolved with Sequelae]
  - Parkinsonism [Recovered/Resolved with Sequelae]
  - Drug effect incomplete [Unknown]
